FAERS Safety Report 24818213 (Version 2)
Quarter: 2025Q1

REPORT INFORMATION
  Report Type: Report from Study
  Country: US (occurrence: US)
  Receive Date: 20250108
  Receipt Date: 20250122
  Transmission Date: 20250409
  Serious: Yes (Hospitalization)
  Sender: TAKEDA
  Company Number: US-TAKEDA-2024TUS107837

PATIENT
  Age: 50 Year
  Sex: Female
  Weight: 68 kg

DRUGS (10)
  1. MARIBAVIR [Suspect]
     Active Substance: MARIBAVIR
     Indication: Cytomegalovirus infection
     Dosage: 400 MILLIGRAM, BID
     Dates: start: 20241019
  2. MARIBAVIR [Suspect]
     Active Substance: MARIBAVIR
     Dosage: 200 MILLIGRAM, BID
     Dates: start: 20241031
  3. LIPITOR [Concomitant]
     Active Substance: ATORVASTATIN CALCIUM
  4. VITAMIN D2 [Concomitant]
     Active Substance: ERGOCALCIFEROL
     Dosage: UNK UNK, 1/WEEK
  5. LEXAPRO [Concomitant]
     Active Substance: ESCITALOPRAM OXALATE
     Dosage: UNK UNK, QD
  6. PEPCID [Concomitant]
     Active Substance: FAMOTIDINE
     Dosage: UNK UNK, QD
  7. FERROUS SULFATE [Concomitant]
     Active Substance: FERROUS SULFATE
     Dosage: UNK UNK, QD
  8. DELTASONE [Concomitant]
     Active Substance: PREDNISONE
     Dosage: 5 MILLIGRAM, QD
  9. PROGRAF [Concomitant]
     Active Substance: TACROLIMUS
     Dosage: UNK UNK, QD
  10. PROGRAF [Concomitant]
     Active Substance: TACROLIMUS
     Dosage: UNK UNK, Q12H

REACTIONS (4)
  - Device related infection [Unknown]
  - Fluid intake reduced [Unknown]
  - Blood creatinine increased [Unknown]
  - Dysgeusia [Unknown]

NARRATIVE: CASE EVENT DATE: 20250113
